FAERS Safety Report 4299009-0 (Version None)
Quarter: 2004Q1

REPORT INFORMATION
  Report Type: 
  Country: None (occurrence: None)
  Receive Date: 20040217
  Receipt Date: 20040205
  Transmission Date: 20041129
  Serious: Yes (Hospitalization)
  Sender: FDA-Public Use
  Company Number: 04P-087-0246491-00

PATIENT
  Age: 35 Year
  Sex: Male
  Weight: 70 kg

DRUGS (7)
  1. KALETRA [Suspect]
     Indication: HIV INFECTION
     Dosage: 1 CAPSULE, 2 IN 1 D, PER ORAL
     Route: 048
     Dates: start: 20001017
  2. KALETRA [Suspect]
     Indication: HIV INFECTION
     Dosage: 1 CAPSULE, 2 IN 1 D, PER ORAL
     Route: 048
     Dates: start: 20011228
  3. ABACAVIR [Concomitant]
  4. LAMIVUDINE [Concomitant]
  5. AMPRENAVIR [Concomitant]
  6. IMIQUIMOD [Concomitant]
  7. BACTRIM [Concomitant]

REACTIONS (3)
  - CHOLELITHIASIS [None]
  - CHOLESTASIS [None]
  - PANCREATITIS [None]
